FAERS Safety Report 7478468-6 (Version None)
Quarter: 2011Q2

REPORT INFORMATION
  Report Type: 
  Country: None (occurrence: None)
  Receive Date: 20110513
  Receipt Date: 20100601
  Transmission Date: 20111010
  Serious: Yes (Other)
  Sender: FDA-Public Use
  Company Number: US-PFIZER INC-2010069473

PATIENT
  Age: 48 Year
  Sex: Female
  Weight: 69.388 kg

DRUGS (2)
  1. CELEBREX [Suspect]
     Indication: PAIN
     Dosage: 100 MG, DAILY
     Route: 048
     Dates: start: 20100501
  2. PLAQUENIL [Concomitant]
     Indication: SJOGREN'S SYNDROME
     Dosage: 200 MG, UNK

REACTIONS (3)
  - OEDEMA PERIPHERAL [None]
  - WEIGHT INCREASED [None]
  - SWELLING FACE [None]
